FAERS Safety Report 4304167-5 (Version None)
Quarter: 2004Q1

REPORT INFORMATION
  Report Type: 
  Country: None (occurrence: None)
  Receive Date: 20040224
  Receipt Date: 20040210
  Transmission Date: 20041129
  Serious: Yes (Other)
  Sender: FDA-Public Use
  Company Number: 2004-DE-00751ZA

PATIENT
  Age: 31 Year
  Sex: Female

DRUGS (4)
  1. NEVIRAPINE (NEVIRAPINE) (TA) [Suspect]
     Indication: HIV INFECTION
     Dosage: 200 MG (200 MG)
     Route: 048
     Dates: end: 20000920
  2. LAMIVUDINE (LAMIVUDINE) [Suspect]
     Indication: HIV INFECTION
     Dosage: 300 MG (300 MG)
     Route: 048
     Dates: start: 19991022, end: 20000920
  3. STAMIVUDINE (STAMIVUDINE) [Suspect]
     Indication: HIV INFECTION
     Dosage: 60 MG (60 MG)
     Route: 048
     Dates: end: 20000920
  4. DELAVIRDINE (DELAVIRDINE) (NR) [Suspect]
     Indication: HIV INFECTION
     Dosage: 400 MG (400 MG)
     Route: 048
     Dates: end: 20000920

REACTIONS (3)
  - ABORTION INDUCED [None]
  - COMPLICATIONS OF MATERNAL EXPOSURE TO THERAPEUTIC DRUGS [None]
  - DRUG EXPOSURE DURING PREGNANCY [None]
